FAERS Safety Report 8236979-X (Version None)
Quarter: 2012Q1

REPORT INFORMATION
  Report Type: 
  Country: None (occurrence: None)
  Receive Date: 20120327
  Receipt Date: 20120320
  Transmission Date: 20120608
  Serious: Yes (Other)
  Sender: FDA-Public Use
  Company Number: PHEH2012US006376

PATIENT
  Sex: Female

DRUGS (2)
  1. MYFORTIC [Suspect]
     Indication: RENAL TRANSPLANT
     Dosage: UNK UKN, UNK
     Dates: start: 20040101
  2. NEORAL [Concomitant]
     Dosage: UNK UKN, UNK
     Dates: start: 20040101

REACTIONS (3)
  - GASTROENTERITIS VIRAL [None]
  - MUSCULAR WEAKNESS [None]
  - GAIT DISTURBANCE [None]
